FAERS Safety Report 18112442 (Version 2)
Quarter: 2020Q3

REPORT INFORMATION
  Report Type: Spontaneous
  Country: US (occurrence: US)
  Receive Date: 20200805
  Receipt Date: 20200807
  Transmission Date: 20201103
  Serious: No
  Sender: FDA-Public Use
  Company Number: US-UNITED THERAPEUTICS-UNT-2020-010896

PATIENT
  Sex: Female
  Weight: 72.56 kg

DRUGS (8)
  1. REMODULIN [Suspect]
     Active Substance: TREPROSTINIL
     Dosage: 0.040 ?G/KG, CONTINUING
     Route: 041
  2. UPTRAVI [Suspect]
     Active Substance: SELEXIPAG
     Indication: PULMONARY ARTERIAL HYPERTENSION
     Dosage: UNK
     Route: 048
  3. UPTRAVI [Suspect]
     Active Substance: SELEXIPAG
     Dosage: 1600 ?G, BID (INCREASE DOSE)
     Route: 048
  4. EPOPROSTENOL TEVA [Concomitant]
     Active Substance: EPOPROSTENOL SODIUM
     Indication: PRODUCT USED FOR UNKNOWN INDICATION
     Route: 065
  5. ELIQUIS [Concomitant]
     Active Substance: APIXABAN
     Indication: PRODUCT USED FOR UNKNOWN INDICATION
     Route: 065
  6. AMBRISENTAN [Concomitant]
     Active Substance: AMBRISENTAN
     Indication: PRODUCT USED FOR UNKNOWN INDICATION
     Dosage: UNK
     Route: 065
  7. REMODULIN [Suspect]
     Active Substance: TREPROSTINIL
     Indication: PULMONARY ARTERIAL HYPERTENSION
     Dosage: UNK UNK, CONTINUING
     Route: 041
     Dates: start: 20191003
  8. SILDENAFIL CITRATE. [Concomitant]
     Active Substance: SILDENAFIL CITRATE
     Indication: PRODUCT USED FOR UNKNOWN INDICATION
     Route: 065

REACTIONS (8)
  - Myalgia [Unknown]
  - Fatigue [Unknown]
  - Dizziness [Unknown]
  - Dyspnoea [Unknown]
  - Nausea [Unknown]
  - Headache [Unknown]
  - Pain [Unknown]
  - Somnolence [Unknown]
